FAERS Safety Report 6030692-5 (Version None)
Quarter: 2009Q1

REPORT INFORMATION
  Report Type: 
  Country: None (occurrence: None)
  Receive Date: 20090107
  Receipt Date: 20081229
  Transmission Date: 20090719
  Serious: Yes (Life-Threatening, Hospitalization, Other)
  Sender: FDA-Public Use
  Company Number: AU-ROXANE LABORATORIES, INC.-2008-RO-00477RO

PATIENT
  Age: 60 Year
  Sex: Female

DRUGS (9)
  1. CYCLOPHOSPHAMIDE [Suspect]
     Indication: PULMONARY VASCULITIS
     Dosage: 100MG
  2. PREDNISOLONE [Suspect]
     Indication: PULMONARY VASCULITIS
     Dosage: 100MG
  3. PREDNISOLONE [Suspect]
     Dosage: 7MG
  4. CYCLOSPORINE [Suspect]
     Indication: PULMONARY VASCULITIS
     Dosage: 75MG
  5. MEROPENEM [Suspect]
     Indication: ZYGOMYCOSIS
  6. CEFTRIAXONE [Suspect]
     Indication: ZYGOMYCOSIS
     Dosage: 2G
  7. POSACONAZOLE [Concomitant]
     Indication: ZYGOMYCOSIS
     Route: 048
  8. POSACONAZOLE [Concomitant]
     Route: 048
  9. SULFAMETHAZOLE/TRIMETHOPRIM [Concomitant]
     Indication: ZYGOMYCOSIS
     Route: 048

REACTIONS (7)
  - ARTHRALGIA [None]
  - DYSPNOEA [None]
  - LABORATORY TEST ABNORMAL [None]
  - MALAISE [None]
  - RESPIRATORY DISTRESS [None]
  - THROMBOCYTOPENIA [None]
  - ZYGOMYCOSIS [None]
